FAERS Safety Report 8378884-4 (Version None)
Quarter: 2012Q2

REPORT INFORMATION
  Report Type: 
  Country: None (occurrence: None)
  Receive Date: 20120522
  Receipt Date: 20120522
  Transmission Date: 20120825
  Serious: Yes (Life-Threatening, Hospitalization)
  Sender: FDA-Public Use
  Company Number: None

PATIENT
  Age: 33 Year
  Sex: Male
  Weight: 122.4712 kg

DRUGS (1)
  1. TRETINOIN [Suspect]
     Dosage: 50 MG BID PO
     Route: 048
     Dates: start: 20120418, end: 20120511

REACTIONS (4)
  - OEDEMA PERIPHERAL [None]
  - MYOSITIS [None]
  - NECROTISING FASCIITIS [None]
  - PYREXIA [None]
